FAERS Safety Report 20864118 (Version 1)
Quarter: 2022Q2

REPORT INFORMATION
  Report Type: Report from Study
  Country: FR (occurrence: FR)
  Receive Date: 20220523
  Receipt Date: 20220523
  Transmission Date: 20220721
  Serious: Yes (Life-Threatening)
  Sender: FDA-Public Use
  Company Number: FR-AMGEN-FRACT2022089088

PATIENT
  Age: 69 Year
  Sex: Female
  Weight: 61 kg

DRUGS (7)
  1. CARFILZOMIB [Suspect]
     Active Substance: CARFILZOMIB
     Indication: Plasma cell myeloma
     Dosage: 36 MILLIGRAM, PER CHEMO REGIM
     Route: 042
     Dates: start: 20210115
  2. CARFILZOMIB [Suspect]
     Active Substance: CARFILZOMIB
     Dosage: 49.2 MILLIGRAM, PER CHEMO REGIM
     Route: 042
  3. ISATUXIMAB [Suspect]
     Active Substance: ISATUXIMAB
     Indication: Plasma cell myeloma
     Dosage: 750 MILLIGRAM, PER CHEMO REGIM
     Route: 042
     Dates: start: 20210114
  4. ISATUXIMAB [Suspect]
     Active Substance: ISATUXIMAB
     Dosage: 610 MILLIGRAM, PER CHEMO REGIM
     Route: 042
  5. POMALIDOMIDE [Suspect]
     Active Substance: POMALIDOMIDE
     Indication: Plasma cell myeloma
     Dosage: 4 MILLIGRAM, PER CHEMO REGIM
     Route: 048
     Dates: start: 20210114
  6. POMALIDOMIDE [Suspect]
     Active Substance: POMALIDOMIDE
     Dosage: 2 MILLIGRAM, PER CHEMO REGIM
     Route: 048
  7. DEXAMETHASONE [Concomitant]
     Active Substance: DEXAMETHASONE
     Indication: Plasma cell myeloma
     Dosage: 20 MILLIGRAM
     Dates: start: 20210114, end: 20211217

REACTIONS (1)
  - Lymphopenia [Recovered/Resolved]

NARRATIVE: CASE EVENT DATE: 20211221
